FAERS Safety Report 17485335 (Version 1)
Quarter: 2020Q1

REPORT INFORMATION
  Report Type: Spontaneous
  Country: TR (occurrence: TR)
  Receive Date: 20200302
  Receipt Date: 20200302
  Transmission Date: 20200409
  Serious: Yes (Hospitalization)
  Sender: FDA-Public Use
  Company Number: TR-ANIPHARMA-2020-TR-000034

PATIENT
  Age: 14 Year
  Sex: Female

DRUGS (2)
  1. INDOMETHACIN (NON-SPECIFIC) [Suspect]
     Active Substance: INDOMETHACIN
     Indication: DYSMENORRHOEA
  2. METHYLPHENIDATE HYDROCHLORIDE EXTENDED-RELEASE TABLETS USP (NON-SPECIF [Suspect]
     Active Substance: METHYLPHENIDATE HYDROCHLORIDE
     Indication: ATTENTION DEFICIT/HYPERACTIVITY DISORDER
     Dosage: 36 MG DAILY

REACTIONS (2)
  - Drug interaction [Recovered/Resolved]
  - Hallucination, visual [Recovered/Resolved]
